FAERS Safety Report 11475045 (Version 1)
Quarter: 2015Q3

REPORT INFORMATION
  Report Type: Spontaneous
  Country: US (occurrence: None)
  Receive Date: 20150908
  Receipt Date: 20150908
  Transmission Date: 20151125
  Serious: Yes (Life-Threatening, Hospitalization, Disabling)
  Sender: FDA-Public Use
  Company Number: None

PATIENT
  Age: 64 Year
  Sex: Male
  Weight: 67.13 kg

DRUGS (1)
  1. BUPRENORPHINE 8 MG [Suspect]
     Active Substance: BUPRENORPHINE
     Indication: OBSESSIVE-COMPULSIVE DISORDER
     Dosage: TAKEN UNDER THE TONGUE
     Dates: start: 20060901, end: 20150901

REACTIONS (4)
  - Dyspnoea [None]
  - Respiratory disorder [None]
  - Lung disorder [None]
  - Pneumonia [None]

NARRATIVE: CASE EVENT DATE: 20150901
